FAERS Safety Report 24086615 (Version 1)
Quarter: 2024Q3

REPORT INFORMATION
  Report Type: Spontaneous
  Country: US (occurrence: US)
  Receive Date: 20240713
  Receipt Date: 20240713
  Transmission Date: 20241017
  Serious: No
  Sender: COSETTE PHARMACEUTICALS
  Company Number: US-COSETTE-CP2024US000153

PATIENT
  Age: 38 Year
  Sex: Male
  Weight: 185 kg

DRUGS (1)
  1. VYLEESI [Suspect]
     Active Substance: BREMELANOTIDE ACETATE
     Indication: Libido decreased
     Route: 065
     Dates: start: 202312, end: 2024

REACTIONS (2)
  - Nausea [Unknown]
  - Expired product administered [Unknown]

NARRATIVE: CASE EVENT DATE: 20240630
